FAERS Safety Report 6324149-1 (Version None)
Quarter: 2009Q3

REPORT INFORMATION
  Report Type: 
  Country: None (occurrence: None)
  Receive Date: 20090824
  Receipt Date: 20090527
  Transmission Date: 20100115
  Serious: No
  Sender: FDA-Public Use
  Company Number: US-ABBOTT-09P-163-0576601-00

PATIENT
  Sex: Male
  Weight: 80.812 kg

DRUGS (1)
  1. NIASPAN [Suspect]
     Indication: HIGH DENSITY LIPOPROTEIN DECREASED
     Dosage: 500MG X 1/2 A TABLET EACH NIGHT
     Dates: start: 20090526

REACTIONS (3)
  - BLOOD PRESSURE INCREASED [None]
  - FLUSHING [None]
  - WRONG TECHNIQUE IN DRUG USAGE PROCESS [None]
